FAERS Safety Report 4362226-5 (Version None)
Quarter: 2004Q2

REPORT INFORMATION
  Report Type: 
  Country: None (occurrence: None)
  Receive Date: 20040517
  Receipt Date: 20040430
  Transmission Date: 20050107
  Serious: Yes (Other)
  Sender: FDA-Public Use
  Company Number: ZANA001290

PATIENT
  Age: 74 Year
  Sex: Male

DRUGS (8)
  1. TIZANIDINE HCL [Suspect]
     Indication: HYPOTONIA
     Dosage: 2 MG DAILY ORAL
     Route: 048
     Dates: start: 20031101
  2. MUCOSTA (REBAMIPIDE) [Concomitant]
  3. ETODOLAC [Concomitant]
  4. NITRENDIPINE (NITRENDIPINE) [Concomitant]
  5. BAYASPIRINA (ACETYLSALICYLIC ACID) [Concomitant]
  6. RESPLEN (EPRAZINONE HYDROCHLORIDE) [Concomitant]
  7. EMPYNASE (PRONASE) [Concomitant]
  8. SPELEAR (FUDOSTEINE) [Concomitant]

REACTIONS (2)
  - JAUNDICE [None]
  - LABORATORY TEST ABNORMAL [None]
